FAERS Safety Report 17660253 (Version 1)
Quarter: 2020Q2

REPORT INFORMATION
  Report Type: Spontaneous
  Country: US (occurrence: US)
  Receive Date: 20200410
  Receipt Date: 20200410
  Transmission Date: 20200713
  Serious: No
  Sender: FDA-Public Use
  Company Number: None

PATIENT
  Age: 91 Year
  Weight: 69.75 kg

DRUGS (12)
  1. BEXAROTENE. [Suspect]
     Active Substance: BEXAROTENE
     Indication: CUTANEOUS LYMPHOMA
     Route: 048
     Dates: start: 20170505, end: 20200312
  2. TAMSULOSIN 0.4MG, ORAL [Concomitant]
  3. LEVOTHYROXINE SODIUM 175MCG, ORAL [Concomitant]
  4. LASIX, 40MG ,ORAL [Concomitant]
  5. ISOSORBIDE MONONITRATE ER 60MG, ORAL [Concomitant]
  6. CEPHALEXIN 500MG, ORAL [Concomitant]
  7. METOPROLOL TARTRATE 25MG, ORAL [Concomitant]
  8. OMEPRAZOLE 20MG ORAL [Concomitant]
  9. LISINOPRIL 10MG ,ORAL [Concomitant]
  10. AMBIEN 10MG, ORAL [Concomitant]
  11. BETHANACHOL CHLORIDE 25MG, ORAL [Concomitant]
  12. ELIQUIS 5MG, ORAL [Concomitant]

REACTIONS (1)
  - Death [None]

NARRATIVE: CASE EVENT DATE: 20200410
